FAERS Safety Report 11779719 (Version 1)
Quarter: 2015Q4

REPORT INFORMATION
  Report Type: Report from Study
  Country: US (occurrence: US)
  Receive Date: 20151125
  Receipt Date: 20151125
  Transmission Date: 20160304
  Serious: Yes (Hospitalization)
  Sender: FDA-Public Use
  Company Number: US-BIOGENIDEC-2015BI154064

PATIENT
  Age: 60 Year
  Sex: Male

DRUGS (6)
  1. LISINOPRIL. [Concomitant]
     Active Substance: LISINOPRIL
  2. DIGOXIN. [Concomitant]
     Active Substance: DIGOXIN
  3. CARVEDILOL. [Concomitant]
     Active Substance: CARVEDILOL
  4. XARELTO [Concomitant]
     Active Substance: RIVAROXABAN
  5. TECFIDERA [Suspect]
     Active Substance: DIMETHYL FUMARATE
     Indication: MULTIPLE SCLEROSIS
     Route: 048
  6. FUROSEMIDE. [Concomitant]
     Active Substance: FUROSEMIDE

REACTIONS (2)
  - Respiratory tract infection [Unknown]
  - Atrial fibrillation [Unknown]
